FAERS Safety Report 7477493-9 (Version None)
Quarter: 2011Q2

REPORT INFORMATION
  Report Type: 
  Country: None (occurrence: None)
  Receive Date: 20110513
  Receipt Date: 20060220
  Transmission Date: 20111010
  Serious: No
  Sender: FDA-Public Use
  Company Number: 2006BI003082

PATIENT
  Sex: Female

DRUGS (2)
  1. COPAXONE [Concomitant]
  2. TYSABRI [Suspect]
     Indication: RELAPSING-REMITTING MULTIPLE SCLEROSIS
     Route: 042
     Dates: start: 20041231, end: 20050119

REACTIONS (2)
  - PAIN [None]
  - MULTIPLE SCLEROSIS RELAPSE [None]
